FAERS Safety Report 9466840 (Version 1)
Quarter: 2013Q3

REPORT INFORMATION
  Report Type: Spontaneous
  Country: ES (occurrence: ES)
  Receive Date: 20130820
  Receipt Date: 20130820
  Transmission Date: 20140515
  Serious: Yes (Other)
  Sender: FDA-Public Use
  Company Number: ES-ROXANE LABORATORIES, INC.-2013-RO-01369RO

PATIENT
  Age: 27 Year
  Sex: Male

DRUGS (4)
  1. OXCARBAZEPINE [Suspect]
  2. CEFONICID [Suspect]
     Indication: UPPER RESPIRATORY TRACT INFECTION
  3. OLANZAPINE [Concomitant]
  4. CLONAZEPAM [Concomitant]

REACTIONS (3)
  - Drug reaction with eosinophilia and systemic symptoms [Unknown]
  - Multi-organ disorder [Unknown]
  - Upper respiratory tract infection [Recovered/Resolved]
